FAERS Safety Report 10196206 (Version 2)
Quarter: 2014Q2

REPORT INFORMATION
  Report Type: Spontaneous
  Country: ES (occurrence: ES)
  Receive Date: 20140527
  Receipt Date: 20140620
  Transmission Date: 20141212
  Serious: No
  Sender: FDA-Public Use
  Company Number: ES-ROCHE-1408489

PATIENT
  Age: 46 Year
  Sex: 0
  Weight: 80 kg

DRUGS (4)
  1. PEGASYS [Suspect]
     Indication: HEPATITIS C
     Route: 065
     Dates: start: 20140207, end: 20140422
  2. RIBAVIRIN [Suspect]
     Indication: HEPATITIS C
     Route: 065
     Dates: start: 20140207
  3. TELAPREVIR [Suspect]
     Indication: HEPATITIS C
     Route: 065
     Dates: start: 20140207
  4. OMEPRAZOL [Concomitant]
     Route: 048
     Dates: start: 20140113

REACTIONS (1)
  - Localised oedema [Recovered/Resolved]
